FAERS Safety Report 25334324 (Version 1)
Quarter: 2025Q2

REPORT INFORMATION
  Report Type: Spontaneous
  Country: US (occurrence: US)
  Receive Date: 20250520
  Receipt Date: 20250520
  Transmission Date: 20250717
  Serious: No
  Sender: VERRICA PHARMACEUTICALS
  Company Number: US-VERRICA PHARMACEUTICALS INC.-2025VER000004

PATIENT
  Age: 2 Year
  Sex: Female

DRUGS (1)
  1. YCANTH [Suspect]
     Active Substance: CANTHARIDIN
     Indication: Molluscum contagiosum
     Route: 061
     Dates: start: 202502

REACTIONS (2)
  - Application site pain [Unknown]
  - Application site vesicles [Recovering/Resolving]

NARRATIVE: CASE EVENT DATE: 20250201
